FAERS Safety Report 13368123 (Version 3)
Quarter: 2017Q2

REPORT INFORMATION
  Report Type: Spontaneous
  Country: JP (occurrence: JP)
  Receive Date: 20170324
  Receipt Date: 20170503
  Transmission Date: 20170830
  Serious: Yes (Death, Other)
  Sender: FDA-Public Use
  Company Number: JP-ROCHE-1910617

PATIENT
  Age: 65 Year
  Sex: Female
  Weight: 52 kg

DRUGS (4)
  1. AVASTIN [Suspect]
     Active Substance: BEVACIZUMAB
     Indication: OVARIAN CANCER
     Dosage: TREATMENT LINE: 2ND LINE TREATMENT CYCLE OF THIS MEDICINE NUMBER: 3 OR MORE
     Route: 041
     Dates: start: 20160901, end: 20170106
  2. TRYPTANOL [Concomitant]
     Active Substance: AMITRIPTYLINE
     Dosage: DOSAGE IS UNCERTAIN.
     Route: 065
     Dates: start: 20170106, end: 20170109
  3. PACLITAXEL. [Suspect]
     Active Substance: PACLITAXEL
     Indication: OVARIAN CANCER
     Dosage: DOSAGE IS UNCERTAIN.?DATE OF MOST RECENT DOSE: 06/JAN/2017
     Route: 041
     Dates: start: 20160901
  4. CARBOPLATIN. [Suspect]
     Active Substance: CARBOPLATIN
     Indication: OVARIAN CANCER
     Dosage: DOSAGE IS UNCERTAIN.?DATE OF MOST RECENT DOSE: 06/JAN/2017
     Route: 041
     Dates: start: 20160901

REACTIONS (5)
  - White blood cell count decreased [Recovered/Resolved]
  - Cerebellar infarction [Not Recovered/Not Resolved]
  - Disease progression [Fatal]
  - Anaemia [Recovered/Resolved]
  - Neutrophil count decreased [Recovered/Resolved]

NARRATIVE: CASE EVENT DATE: 20161214
